FAERS Safety Report 4574184-9 (Version None)
Quarter: 2005Q1

REPORT INFORMATION
  Report Type: 
  Country: None (occurrence: None)
  Receive Date: 20050208
  Receipt Date: 20050202
  Transmission Date: 20050727
  Serious: Yes (Other)
  Sender: FDA-Public Use
  Company Number: PHEH2005US01649

PATIENT
  Age: 64 Year
  Sex: Female

DRUGS (1)
  1. GENTEAL (NVO) [Suspect]
     Indication: KERATOCONJUNCTIVITIS SICCA
     Dosage: UNK GTT, UNK

REACTIONS (5)
  - CATARACT [None]
  - DRUG HYPERSENSITIVITY [None]
  - HYPERSENSITIVITY [None]
  - RETINAL SCAR [None]
  - TOXOPLASMOSIS [None]
